FAERS Safety Report 8425020-1 (Version None)
Quarter: 2012Q2

REPORT INFORMATION
  Report Type: 
  Country: None (occurrence: None)
  Receive Date: 20120611
  Receipt Date: 20120530
  Transmission Date: 20120825
  Serious: Yes (Other)
  Sender: FDA-Public Use
  Company Number: US-ELI_LILLY_AND_COMPANY-US201206000438

PATIENT
  Sex: Male

DRUGS (3)
  1. HUMALOG [Suspect]
     Indication: TYPE 1 DIABETES MELLITUS
     Dosage: 50 %, OTHER
     Route: 058
  2. HUMALOG [Suspect]
     Dosage: .8 U, SINGLE
     Route: 058
  3. HUMALOG [Suspect]
     Dosage: .7 U, SINGLE
     Route: 058

REACTIONS (4)
  - FEELING ABNORMAL [None]
  - BLOOD GLUCOSE INCREASED [None]
  - BLOOD GLUCOSE DECREASED [None]
  - GLYCOSYLATED HAEMOGLOBIN INCREASED [None]
